FAERS Safety Report 16469373 (Version 1)
Quarter: 2019Q3

REPORT INFORMATION
  Report Type: Spontaneous
  Country: US (occurrence: US)
  Receive Date: 20190621
  Receipt Date: 20190621
  Transmission Date: 20191004
  Serious: Yes (Hospitalization)
  Sender: FDA-Public Use
  Company Number: None

PATIENT
  Age: 78 Year
  Sex: Female

DRUGS (9)
  1. DULOXETINE CAP 30 MG [Concomitant]
  2. OXYCODONE TAB 5 MG [Concomitant]
  3. SPIRIVA CAP HANDHLR [Concomitant]
  4. TRAMADOL HCL TAB 50 MG [Concomitant]
  5. BUT/APAP/ CAF TAB [Concomitant]
  6. ZOLPIDEM TAB 10 MG [Concomitant]
  7. CELECOXIB CAP 200 MG [Concomitant]
  8. PROLIA [Suspect]
     Active Substance: DENOSUMAB
     Indication: OSTEOPOROTIC FRACTURE
     Dosage: ?          OTHER FREQUENCY:EVERY 6 MONTHS?
     Route: 058
     Dates: start: 20180420
  9. ATROVASTATIN TAB 40 MG [Concomitant]

REACTIONS (2)
  - Spinal operation [None]
  - Therapy cessation [None]
